FAERS Safety Report 12997027 (Version 2)
Quarter: 2017Q1

REPORT INFORMATION
  Report Type: Spontaneous
  Country: US (occurrence: US)
  Receive Date: 20161205
  Receipt Date: 20170206
  Transmission Date: 20170428
  Serious: No
  Sender: FDA-Public Use
  Company Number: US-009507513-1612USA001456

PATIENT

DRUGS (2)
  1. ERTAPENEM SODIUM [Suspect]
     Active Substance: ERTAPENEM SODIUM
     Indication: ANTIBIOTIC THERAPY
     Dosage: UNK, QD
     Route: 051
  2. CUBICIN [Suspect]
     Active Substance: DAPTOMYCIN
     Indication: ANTIBIOTIC THERAPY
     Dosage: 6 MG/KG, QD
     Route: 051

REACTIONS (1)
  - Adverse event [Unknown]
